FAERS Safety Report 22231485 (Version 1)
Quarter: 2023Q2

REPORT INFORMATION
  Report Type: Spontaneous
  Country: None (occurrence: CN)
  Receive Date: 20230420
  Receipt Date: 20230420
  Transmission Date: 20230722
  Serious: Yes (Life-Threatening)
  Sender: FDA-Public Use
  Company Number: CN-Jiangsu Hengrui Medicine Co., Ltd.-2140580

PATIENT
  Age: 15 Year
  Sex: Female
  Weight: 42 kg

DRUGS (2)
  1. CYCLOPHOSPHAMIDE [Suspect]
     Active Substance: CYCLOPHOSPHAMIDE
     Indication: Clear cell sarcoma of the kidney
     Route: 017
     Dates: start: 20230328, end: 20230401
  2. ETOPOSIDE [Suspect]
     Active Substance: ETOPOSIDE
     Route: 017
     Dates: start: 20230328, end: 20230401

REACTIONS (4)
  - Myelosuppression [Recovering/Resolving]
  - Toxic encephalopathy [Recovering/Resolving]
  - Septic shock [Recovering/Resolving]
  - Haemophagocytic lymphohistiocytosis [Recovering/Resolving]

NARRATIVE: CASE EVENT DATE: 20230407
